FAERS Safety Report 8421006-1 (Version None)
Quarter: 2012Q2

REPORT INFORMATION
  Report Type: 
  Country: None (occurrence: None)
  Receive Date: 20120608
  Receipt Date: 20120608
  Transmission Date: 20120825
  Serious: No
  Sender: FDA-Public Use
  Company Number: US-PFIZER INC-2012120294

PATIENT
  Sex: Male
  Weight: 125 kg

DRUGS (6)
  1. EFFEXOR XR [Suspect]
     Indication: ANXIETY
     Dosage: 75 MG, 3X/DAY
     Route: 048
     Dates: end: 20120516
  2. FLONASE [Concomitant]
     Indication: SLEEP APNOEA SYNDROME
     Dosage: UNK, DAILY
  3. LISINOPRIL [Concomitant]
     Indication: HYPERTENSION
     Dosage: UNK, DAILY
  4. METFORMIN [Concomitant]
     Indication: DIABETES MELLITUS
     Dosage: 500 MG, 2X/DAY
  5. ADVICOR [Concomitant]
     Indication: BLOOD CHOLESTEROL ABNORMAL
     Dosage: UNK, DAILY
  6. ARMODAFINIL [Concomitant]
     Indication: SOMNOLENCE
     Dosage: 250 MG, 1X/DAY

REACTIONS (1)
  - FEELING ABNORMAL [None]
